FAERS Safety Report 14346918 (Version 1)
Quarter: 2018Q1

REPORT INFORMATION
  Report Type: Spontaneous
  Country: FR (occurrence: FR)
  Receive Date: 20180103
  Receipt Date: 20180103
  Transmission Date: 20180509
  Serious: Yes (Hospitalization)
  Sender: FDA-Public Use
  Company Number: FR-PFIZER INC-2017551027

PATIENT
  Age: 38 Year
  Sex: Female

DRUGS (3)
  1. PIROXICAM. [Suspect]
     Active Substance: PIROXICAM
     Indication: NECK PAIN
     Dosage: NOT PRECISE
     Route: 048
     Dates: start: 20171020
  2. DAFALGAN CODEINE [Suspect]
     Active Substance: ACETAMINOPHEN\CODEINE PHOSPHATE
     Indication: NECK PAIN
     Dosage: NOT PRECISE
     Route: 048
     Dates: start: 20171020
  3. THIOCOLCHICOSIDE [Suspect]
     Active Substance: THIOCOLCHICOSIDE
     Indication: NECK PAIN
     Dosage: NOT PRECISE
     Route: 048
     Dates: start: 20171020

REACTIONS (2)
  - Hepatocellular injury [Recovered/Resolved]
  - Hyperlipasaemia [Recovered/Resolved]

NARRATIVE: CASE EVENT DATE: 20171027
